FAERS Safety Report 24606231 (Version 2)
Quarter: 2025Q3

REPORT INFORMATION
  Report Type: Spontaneous
  Country: BR (occurrence: BR)
  Receive Date: 20241112
  Receipt Date: 20250802
  Transmission Date: 20251021
  Serious: Yes (Life-Threatening, Other)
  Sender: ALEXION PHARMACEUTICALS
  Company Number: BR-ASTRAZENECA-24BR0084049

PATIENT

DRUGS (1)
  1. DAPAGLIFLOZIN [Suspect]
     Active Substance: DAPAGLIFLOZIN

REACTIONS (10)
  - Malaise [Unknown]
  - Intentional dose omission [Unknown]
  - Urine abnormality [Unknown]
  - Dizziness [Unknown]
  - Paraesthesia [Unknown]
  - Irritability [Unknown]
  - Muscle atrophy [Unknown]
  - Syncope [Unknown]
  - Abdominal pain [Unknown]
  - Eructation [Unknown]
